FAERS Safety Report 9315243 (Version 3)
Quarter: 2013Q2

REPORT INFORMATION
  Report Type: Report from Study
  Country: AU (occurrence: AU)
  Receive Date: 20130529
  Receipt Date: 20130614
  Transmission Date: 20140414
  Serious: Yes (Hospitalization)
  Sender: FDA-Public Use
  Company Number: AU-BRISTOL-MYERS SQUIBB COMPANY-18923722

PATIENT
  Age: 58 Year
  Sex: Male

DRUGS (4)
  1. BLINDED: IPILIMUMAB [Suspect]
     Indication: NON-SMALL CELL LUNG CANCER STAGE IV
     Dosage: TILL 01MAY2013
     Route: 042
     Dates: start: 20130501
  2. CARBOPLATIN [Suspect]
     Indication: NON-SMALL CELL LUNG CANCER STAGE IV
     Dosage: C1: 23JAN13, 700 MG?C2: 20FEB13, 550MG?C3:01MAY13:550MG.NO OF COURSE-5.
     Route: 042
     Dates: start: 20130501
  3. PACLITAXEL [Suspect]
     Indication: NON-SMALL CELL LUNG CANCER STAGE IV
     Dosage: C1: 23JAN13, 300 MG?C2: 20FEB13, 255MG?C3:01MAY13:176MG.NO OF COURSE-5.
     Route: 042
     Dates: start: 20130301
  4. BLINDED: PLACEBO [Suspect]
     Indication: NON-SMALL CELL LUNG CANCER STAGE IV
     Dosage: TILL 01MAY2013
     Route: 042
     Dates: start: 20130501

REACTIONS (2)
  - Febrile neutropenia [Recovered/Resolved]
  - Pyrexia [Recovered/Resolved]
